FAERS Safety Report 7471131-7 (Version None)
Quarter: 2011Q2

REPORT INFORMATION
  Report Type: 
  Country: None (occurrence: None)
  Receive Date: 20110510
  Receipt Date: 20110502
  Transmission Date: 20111010
  Serious: Yes (Other)
  Sender: FDA-Public Use
  Company Number: CHPA2011US06236

PATIENT
  Sex: Female

DRUGS (2)
  1. EXCEDRIN (MIGRAINE) [Suspect]
     Indication: HEADACHE
     Dosage: 0.5 DF, PRN
     Route: 048
  2. EXCEDRIN (MIGRAINE) [Suspect]
     Indication: PAIN
     Dosage: 0.5 DF, PRN
     Route: 048

REACTIONS (8)
  - CHOKING [None]
  - DYSPHAGIA [None]
  - ANXIETY [None]
  - ORAL DISCOMFORT [None]
  - COUGH [None]
  - ASTHMA [None]
  - THROAT IRRITATION [None]
  - LARYNGOSPASM [None]
